FAERS Safety Report 9522858 (Version 1)
Quarter: 2013Q1

REPORT INFORMATION
  Report Type: Spontaneous
  Country: US (occurrence: None)
  Receive Date: 20130305
  Receipt Date: 20130305
  Transmission Date: 20140127
  Serious: Yes (Other)
  Sender: FDA-Public Use
  Company Number: 163-21880-12031171

PATIENT
  Age: 77 Year
  Sex: Male
  Weight: 90.72 kg

DRUGS (17)
  1. REVLIMID [Suspect]
     Indication: PLASMA CELL MYELOMA
     Dosage: 10 MG, 1 IN 1 D, PO
     Route: 048
     Dates: start: 20110528
  2. NEXIUM [Concomitant]
  3. CARVEDOLOL (CARVEDOLOL) [Concomitant]
  4. TRICOR (FENOFIBRATE) [Concomitant]
  5. AVODART (DUTASTERIDE) CAPSULES [Concomitant]
  6. LISINOPRIL (LISINOPRIL) [Concomitant]
  7. FEOSOL (FERROUS SULFATE) [Concomitant]
  8. OSTEO BI-FLEX (OSTEO BI-FLEX) [Concomitant]
  9. FISH OIL (FISH OIL) [Concomitant]
  10. ACETYLSALICYLIC ACID) [Concomitant]
  11. ROSUVASTATIN (ROSUVASTATIN) [Concomitant]
  12. MEDROL DOSEPAK (METHYLPREDNISOLONE) [Concomitant]
  13. IMODIUM (LOPERAMIDE) [Concomitant]
  14. LOMOTIL (LOMOTIL [Concomitant]
  15. NYSTATIN (NYSTATIN) [Concomitant]
  16. NORVASC (AMLODIPINE BESILATE) [Concomitant]
  17. LEVAQUIN (LEVOFLOXACIN) [Concomitant]

REACTIONS (4)
  - Infection [None]
  - Pyrexia [None]
  - Asthenia [None]
  - Diarrhoea [None]
